FAERS Safety Report 23959124 (Version 1)
Quarter: 2024Q2

REPORT INFORMATION
  Report Type: Spontaneous
  Country: SK (occurrence: SK)
  Receive Date: 20240611
  Receipt Date: 20240611
  Transmission Date: 20240715
  Serious: Yes (Other)
  Sender: FDA-Public Use
  Company Number: SK-002147023-NVSC2024SK112871

PATIENT
  Age: 66 Year
  Sex: Male

DRUGS (9)
  1. DASATINIB [Suspect]
     Active Substance: DASATINIB
     Indication: Product used for unknown indication
     Dosage: UNK
     Dates: start: 2006, end: 2013
  2. DASATINIB [Suspect]
     Active Substance: DASATINIB
     Dosage: UNK
     Dates: start: 2014
  3. DASATINIB [Suspect]
     Active Substance: DASATINIB
     Dosage: UNK
     Dates: start: 2017
  4. DASATINIB [Suspect]
     Active Substance: DASATINIB
     Dosage: 55 MG, QD
     Dates: start: 202405
  5. IMATINIB [Suspect]
     Active Substance: IMATINIB
     Indication: Chronic myeloid leukaemia
     Dosage: 400 MG, QD
     Dates: start: 2003
  6. IMATINIB [Suspect]
     Active Substance: IMATINIB
     Dosage: 600 MG, QD
     Dates: end: 2004
  7. PONATINIB [Suspect]
     Active Substance: PONATINIB
     Indication: Product used for unknown indication
     Dosage: 15 MG, TIW
  8. PONATINIB [Suspect]
     Active Substance: PONATINIB
     Dosage: 30 MG, QD
  9. PONATINIB [Suspect]
     Active Substance: PONATINIB
     Dosage: 15 MG, QD
     Dates: start: 201803

REACTIONS (1)
  - Chronic myeloid leukaemia recurrent [Not Recovered/Not Resolved]
